FAERS Safety Report 8604693-4 (Version None)
Quarter: 2012Q3

REPORT INFORMATION
  Report Type: 
  Country: None (occurrence: None)
  Receive Date: 20120820
  Receipt Date: 20120814
  Transmission Date: 20120928
  Serious: No
  Sender: FDA-Public Use
  Company Number: US-B.I. PHARMACEUTICALS,INC./RIDGEFIELD-2012-BP-19272BP

PATIENT
  Sex: Male

DRUGS (6)
  1. PERCOCET [Concomitant]
     Indication: PAIN
     Route: 048
     Dates: start: 20120401, end: 20120401
  2. MOTRIN [Concomitant]
     Indication: PAIN
     Route: 048
     Dates: start: 20120401, end: 20120401
  3. FLOMAX [Suspect]
     Dosage: 0.4 MG
     Route: 048
     Dates: start: 20120813, end: 20120813
  4. FLOMAX [Suspect]
     Indication: NEPHROLITHIASIS
     Dosage: 0.4 MG
     Route: 048
     Dates: start: 20120401, end: 20120401
  5. COZAAR [Concomitant]
     Indication: HYPERTENSION
     Route: 048
  6. FLOMAX [Suspect]
     Indication: URINARY RETENTION
     Dosage: 0.4 MG
     Route: 048
     Dates: start: 20120612, end: 20120612

REACTIONS (5)
  - DIZZINESS [None]
  - URINARY RETENTION [None]
  - URINE OUTPUT INCREASED [None]
  - LETHARGY [None]
  - COLD SWEAT [None]
